FAERS Safety Report 8609970 (Version 3)
Quarter: 2012Q4

REPORT INFORMATION
  Report Type: 
  Country: GB (occurrence: GB)
  Receive Date: 20120612
  Receipt Date: 20120823
  Transmission Date: 20130627
  Serious: Yes (Other)
  Sender: FDA-Public Use
  Company Number: PHFR2012GB003211

PATIENT
  Sex: Male

DRUGS (1)
  1. CLOZARIL [Suspect]
     Indication: SCHIZOPHRENIA
     Dosage: 450 mg
     Route: 048
     Dates: start: 20010701

REACTIONS (6)
  - Disinhibition [Unknown]
  - Inappropriate affect [Unknown]
  - Aggression [Unknown]
  - Depressed mood [Unknown]
  - Hyperhidrosis [Unknown]
  - Drug dose omission [None]
